FAERS Safety Report 8222134-6 (Version None)
Quarter: 2012Q1

REPORT INFORMATION
  Report Type: 
  Country: None (occurrence: None)
  Receive Date: 20120320
  Receipt Date: 20120315
  Transmission Date: 20120608
  Serious: Yes (Hospitalization)
  Sender: FDA-Public Use
  Company Number: GB-MERCK-1203USA01997

PATIENT
  Age: 55 Year
  Sex: Male
  Weight: 71 kg

DRUGS (8)
  1. GABAPENTIN [Concomitant]
     Indication: ANALGESIC THERAPY
     Route: 048
     Dates: start: 20101024
  2. ENOXAPARIN SODIUM [Concomitant]
     Route: 058
     Dates: start: 20111109
  3. VELCADE [Suspect]
     Route: 042
     Dates: start: 20100927
  4. VELCADE [Suspect]
     Indication: MULTIPLE MYELOMA
     Route: 042
     Dates: start: 20101018, end: 20101110
  5. DECADRON [Suspect]
     Indication: MULTIPLE MYELOMA
     Route: 048
     Dates: start: 20100927, end: 20101109
  6. AMOXICILLIN [Concomitant]
     Route: 048
     Dates: start: 20101025
  7. DOXORUBICIN HCL [Suspect]
     Indication: MULTIPLE MYELOMA
     Route: 030
     Dates: start: 20100927, end: 20101109
  8. ACETAMINOPHEN [Concomitant]
     Indication: ANALGESIC THERAPY
     Route: 048
     Dates: start: 20101025

REACTIONS (3)
  - DIARRHOEA [None]
  - DRUG INEFFECTIVE [None]
  - MULTIPLE MYELOMA [None]
